FAERS Safety Report 4518420-3 (Version None)
Quarter: 2004Q4

REPORT INFORMATION
  Report Type: 
  Country: None (occurrence: None)
  Receive Date: 20041202
  Receipt Date: 20041129
  Transmission Date: 20050328
  Serious: Yes (Other)
  Sender: FDA-Public Use
  Company Number: THQ2004A00998

PATIENT

DRUGS (1)
  1. PROSTAP (LEUPROLIDE ACETATE) (INJECTION) [Suspect]
     Dosage: SUBCUTANEOUS
     Route: 058

REACTIONS (1)
  - BENIGN INTRACRANIAL HYPERTENSION [None]
